FAERS Safety Report 14142199 (Version 1)
Quarter: 2017Q4

REPORT INFORMATION
  Report Type: Report from Study
  Country: US (occurrence: US)
  Receive Date: 20171030
  Receipt Date: 20171030
  Transmission Date: 20180321
  Serious: No
  Sender: FDA-Public Use
  Company Number: US-IPSEN BIOPHARMACEUTICALS, INC.-2014-2259

PATIENT
  Sex: Male

DRUGS (12)
  1. LEVOTHYROXINE. [Concomitant]
     Active Substance: LEVOTHYROXINE
     Route: 048
  2. NUTROPIN AQ [Suspect]
     Active Substance: SOMATROPIN
     Indication: HYPOPITUITARISM
     Route: 058
  3. HYDROCORTISONE. [Concomitant]
     Active Substance: HYDROCORTISONE
     Route: 048
  4. SYNTHROID [Concomitant]
     Active Substance: LEVOTHYROXINE SODIUM
  5. DEXTROSE. [Concomitant]
     Active Substance: DEXTROSE
     Dosage: 5% - 0.45%
  6. HYDROCORTISONE. [Concomitant]
     Active Substance: HYDROCORTISONE
     Route: 048
  7. INSULIN [Concomitant]
     Active Substance: INSULIN NOS
     Dosage: PEN NEEDLE (3/16^), ULTRAFINE SYRINGE, 31G * 5 MM
  8. TESTOSTERONE. [Concomitant]
     Active Substance: TESTOSTERONE
  9. INCRELEX [Suspect]
     Active Substance: MECASERMIN
     Indication: PRODUCT USED FOR UNKNOWN INDICATION
     Dosage: 66 (UNIT NOT REPORTED)
     Route: 058
  10. CORTEF [Concomitant]
     Active Substance: HYDROCORTISONE
     Route: 065
  11. HYDROCORTISONE. [Concomitant]
     Active Substance: HYDROCORTISONE
     Route: 048
  12. NUTROPIN AQ [Suspect]
     Active Substance: SOMATROPIN
     Dosage: 1.8 MG
     Route: 058

REACTIONS (4)
  - Social avoidant behaviour [Unknown]
  - Hypoaesthesia [Unknown]
  - Depressed mood [Unknown]
  - Hypoglycaemia [Unknown]
